FAERS Safety Report 4333655-0 (Version None)
Quarter: 2004Q2

REPORT INFORMATION
  Report Type: 
  Country: None (occurrence: None)
  Receive Date: 20040405
  Receipt Date: 20040405
  Transmission Date: 20050107
  Serious: Yes (Life-Threatening, Hospitalization)
  Sender: FDA-Public Use
  Company Number: None

PATIENT
  Sex: Male
  Weight: 53.8 kg

DRUGS (3)
  1. CISPLATIN [Suspect]
     Indication: CARCINOMA
     Dosage: 162 MG Q3WK IVX2
     Route: 042
     Dates: start: 20041203, end: 20040302
  2. RADIATION THERAPY [Concomitant]
  3. G-TUBE PLACED [Concomitant]

REACTIONS (1)
  - FEBRILE NEUTROPENIA [None]
